FAERS Safety Report 6631850-9 (Version None)
Quarter: 2010Q1

REPORT INFORMATION
  Report Type: 
  Country: None (occurrence: None)
  Receive Date: 20100312
  Receipt Date: 20100226
  Transmission Date: 20100710
  Serious: Yes (Other)
  Sender: FDA-Public Use
  Company Number: AU-ROCHE-687555

PATIENT
  Age: 44 Year
  Sex: Female

DRUGS (6)
  1. HERCEPTIN [Suspect]
     Indication: DRUG USE FOR UNKNOWN INDICATION
     Dosage: LOADING DOSE
     Route: 065
  2. HERCEPTIN [Suspect]
     Route: 065
  3. TAXOTERE [Concomitant]
  4. TAXOTERE [Concomitant]
     Dosage: DOSE REDUCED TO 75%
  5. TRIPTORELIN [Concomitant]
     Dosage: RECEIVED FOUR DOSES
     Route: 030
     Dates: start: 20091120
  6. LYSINE [Concomitant]
     Indication: ANTIVIRAL PROPHYLAXIS

REACTIONS (1)
  - LIVER FUNCTION TEST ABNORMAL [None]
